FAERS Safety Report 13574164 (Version 1)
Quarter: 2017Q2

REPORT INFORMATION
  Report Type: Report from Study
  Country: US (occurrence: US)
  Receive Date: 20170523
  Receipt Date: 20170523
  Transmission Date: 20170830
  Serious: Yes (Other)
  Sender: FDA-Public Use
  Company Number: US-JAZZ-2017-US-005556

PATIENT
  Age: 32 Year
  Sex: Female

DRUGS (3)
  1. XYREM [Suspect]
     Active Substance: SODIUM OXYBATE
     Indication: HYPERSOMNIA
     Dosage: 2.25 G, BID
     Route: 048
     Dates: start: 20170420, end: 20170420
  2. XYREM [Suspect]
     Active Substance: SODIUM OXYBATE
     Dosage: 2 G, BID
     Route: 048
     Dates: start: 201704
  3. XYREM [Suspect]
     Active Substance: SODIUM OXYBATE
     Dosage: 3 G, BID
     Route: 048
     Dates: start: 20170421, end: 201704

REACTIONS (9)
  - Nephrolithiasis [Unknown]
  - Retching [Unknown]
  - Dizziness [Recovering/Resolving]
  - Pain [Unknown]
  - Hyperhidrosis [Unknown]
  - Malaise [Recovered/Resolved]
  - Nausea [Unknown]
  - Hangover [Unknown]
  - Feeling drunk [Unknown]

NARRATIVE: CASE EVENT DATE: 201704
